FAERS Safety Report 6742463-2 (Version None)
Quarter: 2010Q2

REPORT INFORMATION
  Report Type: 
  Country: None (occurrence: None)
  Receive Date: 20100526
  Receipt Date: 20100518
  Transmission Date: 20101027
  Serious: Yes (Other)
  Sender: FDA-Public Use
  Company Number: JP-ABBOTT-10P-087-0639874-00

PATIENT
  Age: 32 Year
  Sex: Male

DRUGS (2)
  1. CLARITH [Suspect]
     Indication: SINUSITIS
     Dosage: INTERMITTENTLY 200MG-400MG
     Route: 048
     Dates: start: 20070101, end: 20070501
  2. LEVOFLOXACIN [Suspect]
     Indication: SINUSITIS
     Dosage: INTERMITTENTLY 200MG
     Route: 048
     Dates: start: 20070101, end: 20070501

REACTIONS (2)
  - CLOSTRIDIAL INFECTION [None]
  - POUCHITIS [None]
